FAERS Safety Report 14147966 (Version 1)
Quarter: 2017Q4

REPORT INFORMATION
  Report Type: Spontaneous
  Country: US (occurrence: US)
  Receive Date: 20171031
  Receipt Date: 20171031
  Transmission Date: 20180321
  Serious: Yes (Other)
  Sender: FDA-Public Use
  Company Number: US-TEIKOKU PHARMA USA-TPU2017-00673

PATIENT
  Sex: Female

DRUGS (2)
  1. LIDOCAINE PATCH [Suspect]
     Active Substance: LIDOCAINE
     Indication: FIBROMYALGIA
     Dosage: ONE PATCH APPLIED TO EACH LEG AND SOMETIMES APPLIED TO BOTTOM OF FEET
     Route: 061
  2. LIDOCAINE PATCH [Suspect]
     Active Substance: LIDOCAINE
     Indication: INTERVERTEBRAL DISC PROTRUSION
     Dosage: PATCH CUT IN HALF AND APPLIED
     Route: 061

REACTIONS (3)
  - Intentional product use issue [Not Recovered/Not Resolved]
  - Fall [Unknown]
  - Spinal operation [Unknown]
